FAERS Safety Report 6529850-2 (Version None)
Quarter: 2010Q1

REPORT INFORMATION
  Report Type: 
  Country: None (occurrence: None)
  Receive Date: 20100107
  Receipt Date: 20100105
  Transmission Date: 20100710
  Serious: Yes (Death, Hospitalization)
  Sender: FDA-Public Use
  Company Number: A0837725A

PATIENT
  Age: 74 Year
  Sex: Male

DRUGS (4)
  1. AVANDIA [Suspect]
     Dosage: 8MG PER DAY
     Route: 048
     Dates: start: 20090901
  2. JANUVIA [Concomitant]
  3. GLYBURIDE [Concomitant]
  4. MULTIPLE MEDICATIONS [Concomitant]

REACTIONS (2)
  - CARDIAC FAILURE [None]
  - DEATH [None]
